FAERS Safety Report 24057271 (Version 2)
Quarter: 2024Q3

REPORT INFORMATION
  Report Type: Spontaneous
  Country: LT (occurrence: LT)
  Receive Date: 20240706
  Receipt Date: 20240725
  Transmission Date: 20241016
  Serious: Yes (Disabling, Other)
  Sender: TEVA
  Company Number: None

PATIENT
  Age: 37 Year
  Sex: Male
  Weight: 84 kg

DRUGS (2)
  1. CIPROFLOXACIN [Suspect]
     Active Substance: CIPROFLOXACIN
     Indication: Prostatitis
     Dosage: CIPROFLOXACIN ACTAVIS
     Route: 048
     Dates: start: 20240105, end: 20240105
  2. Olfen [Concomitant]
     Indication: Prostatitis
     Dosage: 1 CAPSULE PER DAY (STRENGTH UNKNOWN), OLFEN DEPOCAPS
     Route: 048
     Dates: start: 20240105, end: 20240105

REACTIONS (15)
  - Tendon pain [Recovered/Resolved with Sequelae]
  - Tendon pain [Recovered/Resolved]
  - Weight decreased [Unknown]
  - Pain [Recovered/Resolved]
  - Gait disturbance [Recovered/Resolved with Sequelae]
  - Anxiety [Recovered/Resolved]
  - Insomnia [Not Recovered/Not Resolved]
  - Muscle twitching [Recovered/Resolved with Sequelae]
  - Dizziness [Recovered/Resolved]
  - Dry eye [Recovered/Resolved]
  - Burning sensation [Recovered/Resolved]
  - Dyspepsia [Recovered/Resolved]
  - Hyperhidrosis [Recovered/Resolved]
  - Muscle atrophy [Recovered/Resolved]
  - Arthropathy [Recovered/Resolved]

NARRATIVE: CASE EVENT DATE: 20240105
